FAERS Safety Report 7181369-4 (Version None)
Quarter: 2010Q4

REPORT INFORMATION
  Report Type: 
  Country: None (occurrence: None)
  Receive Date: 20101221
  Receipt Date: 20100422
  Transmission Date: 20110411
  Serious: No
  Sender: FDA-Public Use
  Company Number: US-AMGEN-KDL408102

PATIENT

DRUGS (2)
  1. ENBREL [Suspect]
     Indication: RHEUMATOID ARTHRITIS
     Dosage: 50 MG, QWK
     Route: 058
  2. METHOTREXATE [Concomitant]
     Dosage: UNK UNK, UNK

REACTIONS (10)
  - ABDOMINAL DISCOMFORT [None]
  - CHEST PAIN [None]
  - INJECTION SITE ERYTHEMA [None]
  - INJECTION SITE PAIN [None]
  - INJECTION SITE WARMTH [None]
  - JOINT RANGE OF MOTION DECREASED [None]
  - LIVER FUNCTION TEST ABNORMAL [None]
  - OESOPHAGEAL PAIN [None]
  - RHEUMATOID ARTHRITIS [None]
  - SKIN HYPERTROPHY [None]
